FAERS Safety Report 17734947 (Version 1)
Quarter: 2020Q2

REPORT INFORMATION
  Report Type: Report from Study
  Country: IT (occurrence: IT)
  Receive Date: 20200501
  Receipt Date: 20200501
  Transmission Date: 20200714
  Serious: Yes (Hospitalization)
  Sender: FDA-Public Use
  Company Number: IT-TEVA-2020-IT-1227790

PATIENT
  Age: 48 Year
  Sex: Male
  Weight: 70 kg

DRUGS (1)
  1. CIQORIN 50 MG CAPSULE MOLLI [Suspect]
     Active Substance: CYCLOSPORINE
     Indication: PSORIASIS
     Route: 048
     Dates: start: 20191001, end: 20191010

REACTIONS (2)
  - Drug ineffective [Recovering/Resolving]
  - Psoriasis [Recovering/Resolving]

NARRATIVE: CASE EVENT DATE: 20191010
